FAERS Safety Report 12335271 (Version 2)
Quarter: 2016Q2

REPORT INFORMATION
  Report Type: Spontaneous
  Country: US (occurrence: US)
  Receive Date: 20160504
  Receipt Date: 20160517
  Transmission Date: 20160815
  Serious: No
  Sender: FDA-Public Use
  Company Number: US-009507513-1605USA001447

PATIENT
  Age: 18 Year
  Sex: Female
  Weight: 59.41 kg

DRUGS (1)
  1. NEXPLANON [Suspect]
     Active Substance: ETONOGESTREL
     Indication: CONTRACEPTION
     Dosage: 3 YEAR IMPLANT, IN LEFT ARM
     Route: 059
     Dates: start: 20160302

REACTIONS (5)
  - Dyspnoea [Unknown]
  - Urticaria [Unknown]
  - Cough [Unknown]
  - Throat irritation [Unknown]
  - Menometrorrhagia [Unknown]

NARRATIVE: CASE EVENT DATE: 2016
